FAERS Safety Report 6461485-2 (Version None)
Quarter: 2009Q4

REPORT INFORMATION
  Report Type: 
  Country: None (occurrence: None)
  Receive Date: 20091130
  Receipt Date: 20091120
  Transmission Date: 20100525
  Serious: Yes (Other)
  Sender: FDA-Public Use
  Company Number: CA-ABBOTT-09P-028-0609849-00

PATIENT
  Age: 50 Year
  Sex: Male
  Weight: 85 kg

DRUGS (1)
  1. EPIVAL [Suspect]
     Indication: BIPOLAR DISORDER
     Route: 048
     Dates: end: 20091120

REACTIONS (2)
  - EPIDERMAL NECROSIS [None]
  - PARAESTHESIA [None]
